FAERS Safety Report 4271855-9 (Version None)
Quarter: 2004Q1

REPORT INFORMATION
  Report Type: 
  Country: None (occurrence: None)
  Receive Date: 20040115
  Receipt Date: 20040106
  Transmission Date: 20041129
  Serious: Yes (Life-Threatening, Hospitalization)
  Sender: FDA-Public Use
  Company Number: WAES 0401USA00179

PATIENT
  Sex: Female

DRUGS (1)
  1. VIOXX [Suspect]
     Route: 048

REACTIONS (1)
  - PARALYSIS [None]
